FAERS Safety Report 21738716 (Version 4)
Quarter: 2023Q2

REPORT INFORMATION
  Report Type: Report from Study
  Country: US (occurrence: US)
  Receive Date: 20221216
  Receipt Date: 20230509
  Transmission Date: 20230721
  Serious: No
  Sender: FDA-Public Use
  Company Number: US-ABBVIE-4199649

PATIENT
  Age: 42 Year
  Sex: Male

DRUGS (3)
  1. HUMIRA [Suspect]
     Active Substance: ADALIMUMAB
     Indication: Crohn^s disease
     Dosage: FORM STRENGTH: 40 MILLIGRAM
     Route: 058
     Dates: start: 20220421
  2. HUMIRA [Suspect]
     Active Substance: ADALIMUMAB
     Dosage: FORM STRENGTH: 40 MILLIGRAM
     Route: 058
  3. HUMIRA [Suspect]
     Active Substance: ADALIMUMAB
     Dosage: FORM STRENGTH: 40 MILIGRAM
     Route: 058

REACTIONS (7)
  - Depression [Unknown]
  - Bowel movement irregularity [Not Recovered/Not Resolved]
  - Back pain [Unknown]
  - Dyspepsia [Unknown]
  - Crohn^s disease [Not Recovered/Not Resolved]
  - Anxiety [Unknown]
  - Asthma [Unknown]

NARRATIVE: CASE EVENT DATE: 20221001
